FAERS Safety Report 19247670 (Version 3)
Quarter: 2021Q4

REPORT INFORMATION
  Report Type: Report from Study
  Country: US (occurrence: US)
  Receive Date: 20210512
  Receipt Date: 20211220
  Transmission Date: 20220303
  Serious: Yes (Other)
  Sender: FDA-Public Use
  Company Number: US-ABBVIE-20K-163-3533509-00

PATIENT
  Sex: Female

DRUGS (3)
  1. IMBRUVICA [Suspect]
     Active Substance: IBRUTINIB
     Indication: Chronic lymphocytic leukaemia
     Route: 048
     Dates: start: 20200128, end: 20200128
  2. IMBRUVICA [Suspect]
     Active Substance: IBRUTINIB
     Indication: Chronic lymphocytic leukaemia
     Route: 048
     Dates: start: 20200129
  3. IMBRUVICA [Suspect]
     Active Substance: IBRUTINIB
     Route: 048
     Dates: start: 20200129

REACTIONS (15)
  - Hyperkeratosis [Unknown]
  - White blood cell count increased [Unknown]
  - Skin disorder [Not Recovered/Not Resolved]
  - Iliotibial band syndrome [Unknown]
  - Acne [Unknown]
  - Stress [Unknown]
  - Dizziness [Unknown]
  - Muscle spasms [Not Recovered/Not Resolved]
  - Abdominal pain [Unknown]
  - Fatigue [Unknown]
  - Vomiting [Unknown]
  - Anxiety [Unknown]
  - Dizziness [Unknown]
  - Decreased appetite [Unknown]
  - Weight decreased [Unknown]

NARRATIVE: CASE EVENT DATE: 20200101
